FAERS Safety Report 15350097 (Version 2)
Quarter: 2018Q4

REPORT INFORMATION
  Report Type: Report from Study
  Country: US (occurrence: US)
  Receive Date: 20180904
  Receipt Date: 20181105
  Transmission Date: 20190204
  Serious: Yes (Hospitalization, Other)
  Sender: FDA-Public Use
  Company Number: US-BIOGEN-2018BI00627412

PATIENT
  Sex: Female

DRUGS (1)
  1. TYSABRI [Suspect]
     Active Substance: NATALIZUMAB
     Indication: MULTIPLE SCLEROSIS
     Dosage: INFUSED OVER 1 HOUR
     Route: 042
     Dates: start: 20160210

REACTIONS (2)
  - Opportunistic infection [Unknown]
  - Neoplasm malignant [Unknown]
